FAERS Safety Report 4885421-5 (Version None)
Quarter: 2006Q1

REPORT INFORMATION
  Report Type: 
  Country: None (occurrence: None)
  Receive Date: 20060119
  Receipt Date: 20060109
  Transmission Date: 20060701
  Serious: Yes (Hospitalization)
  Sender: FDA-Public Use
  Company Number: AU-ABBOTT-06P-008-0322027-00

PATIENT
  Age: 55 Year
  Sex: Male

DRUGS (10)
  1. REMIFENTANIL HYDROCHLORIDE [Suspect]
     Indication: ANAESTHESIA
     Dosage: 0.05-0.5 UG/KG-1.MIN-1
     Route: 042
  2. PROPOFOL [Suspect]
     Indication: ANAESTHESIA
     Route: 050
  3. ROCURONIUM BROMIDE [Suspect]
     Indication: HYPOTONIA
     Route: 050
  4. ROCURONIUM BROMIDE [Suspect]
  5. CEFALOTIN [Suspect]
     Indication: DRUG USE FOR UNKNOWN INDICATION
     Route: 050
  6. HYDROCORTISONE [Suspect]
     Indication: DRUG USE FOR UNKNOWN INDICATION
  7. GELOFUSINE [Suspect]
     Indication: DRUG USE FOR UNKNOWN INDICATION
  8. VALPROATE SODIUM [Concomitant]
     Indication: DRUG USE FOR UNKNOWN INDICATION
     Route: 048
  9. DEXAMETHASONE TAB [Concomitant]
     Indication: DRUG USE FOR UNKNOWN INDICATION
  10. CITALOPRAM HYDROBROMIDE [Concomitant]
     Indication: DRUG USE FOR UNKNOWN INDICATION
     Route: 048

REACTIONS (6)
  - ANAPHYLACTIC REACTION [None]
  - CARDIAC ARREST [None]
  - ELECTROMECHANICAL DISSOCIATION [None]
  - HEMIPARESIS [None]
  - HYPOTENSION [None]
  - POST PROCEDURAL COMPLICATION [None]
